FAERS Safety Report 17970089 (Version 1)
Quarter: 2020Q3

REPORT INFORMATION
  Report Type: Spontaneous
  Country: CH (occurrence: CH)
  Receive Date: 20200701
  Receipt Date: 20200701
  Transmission Date: 20201103
  Serious: Yes (Hospitalization)
  Sender: FDA-Public Use
  Company Number: NVSC2020CH179587

PATIENT
  Age: 48 Year
  Sex: Female

DRUGS (38)
  1. TORASEMIDE [Suspect]
     Active Substance: TORSEMIDE
     Dosage: UNK UKN
     Route: 065
     Dates: start: 20190327
  2. FLUDARABINE [Suspect]
     Active Substance: FLUDARABINE PHOSPHATE
     Indication: CHEMOTHERAPY
     Dosage: 40 MG/M2, QD
     Route: 065
     Dates: start: 20190313, end: 20190316
  3. BACTRIM [Suspect]
     Active Substance: SULFAMETHOXAZOLE\TRIMETHOPRIM
     Indication: PRODUCT USED FOR UNKNOWN INDICATION
     Dosage: 160 MG (IN TOTAL)
     Route: 065
     Dates: start: 20190320, end: 20190320
  4. ACYCLOVIR. [Suspect]
     Active Substance: ACYCLOVIR
     Indication: PRODUCT USED FOR UNKNOWN INDICATION
     Dosage: 250 MG, TID
     Route: 065
     Dates: start: 20190319, end: 20190326
  5. MYCOPHENOLATE MOFETIL. [Suspect]
     Active Substance: MYCOPHENOLATE MOFETIL
     Indication: PROPHYLAXIS AGAINST GRAFT VERSUS HOST DISEASE
     Dosage: 15 MG/KG, BID
     Route: 065
     Dates: start: 20190323
  6. FLUCONAZOLE. [Suspect]
     Active Substance: FLUCONAZOLE
     Indication: PRODUCT USED FOR UNKNOWN INDICATION
     Dosage: 200 MG (IN TOTAL)
     Route: 065
     Dates: start: 20190326, end: 20190326
  7. TREOSULFAN [Suspect]
     Active Substance: TREOSULFAN
     Indication: CHEMOTHERAPY
     Dosage: 14 MG/M2, QD
     Route: 065
     Dates: start: 20190313, end: 20190315
  8. EMEND [Suspect]
     Active Substance: APREPITANT
     Indication: PRODUCT USED FOR UNKNOWN INDICATION
     Dosage: 80 MG, QD
     Route: 065
     Dates: start: 20190314, end: 20190326
  9. MEPHAMESONE [Suspect]
     Active Substance: DEXAMETHASONE
     Indication: PRODUCT USED FOR UNKNOWN INDICATION
     Dosage: 12 MG, QD
     Route: 042
     Dates: start: 20190321, end: 20190324
  10. ONDANSETRON [Suspect]
     Active Substance: ONDANSETRON
     Dosage: UNK UKN, PRN
     Route: 042
     Dates: start: 20190328
  11. FLUCONAZOLE. [Suspect]
     Active Substance: FLUCONAZOLE
     Dosage: UNK UKN
     Route: 065
     Dates: start: 20190405
  12. PREGABALIN. [Suspect]
     Active Substance: PREGABALIN
     Indication: PRODUCT USED FOR UNKNOWN INDICATION
     Dosage: 25 MG (IN TOTAL)
     Route: 065
     Dates: start: 20190326, end: 20190326
  13. BACTRIM [Suspect]
     Active Substance: SULFAMETHOXAZOLE\TRIMETHOPRIM
     Dosage: UNK UKN
     Route: 065
     Dates: start: 20190404
  14. MYCOSTATINE [Suspect]
     Active Substance: NYSTATIN
     Indication: PRODUCT USED FOR UNKNOWN INDICATION
     Dosage: 100000 IU, QID
     Route: 065
     Dates: start: 20190306, end: 20190326
  15. NEUPOGEN [Suspect]
     Active Substance: FILGRASTIM
     Indication: PROPHYLAXIS AGAINST GRAFT VERSUS HOST DISEASE
     Dosage: 5 ?G/KG, QD
     Route: 042
     Dates: start: 20190323
  16. PERFALGAN [Suspect]
     Active Substance: ACETAMINOPHEN
     Dosage: UNK UKN
     Route: 042
     Dates: start: 20190325, end: 20190325
  17. CYCLOPHOSPHAMIDE. [Suspect]
     Active Substance: CYCLOPHOSPHAMIDE
     Indication: PROPHYLAXIS AGAINST GRAFT VERSUS HOST DISEASE
     Dosage: 50 MG/KG, QD
     Route: 065
     Dates: start: 20190321, end: 20190323
  18. DOXYLAMINE;FOLIC ACID;PYRIDOXINE [Suspect]
     Active Substance: DOXYLAMINE\FOLIC ACID\PYRIDOXINE
     Indication: PRODUCT USED FOR UNKNOWN INDICATION
     Dosage: 62 MG, TID
     Route: 065
     Dates: start: 20190317, end: 20190326
  19. TORASEMIDE [Suspect]
     Active Substance: TORSEMIDE
     Indication: PRODUCT USED FOR UNKNOWN INDICATION
     Dosage: UNK UKN, QD
     Route: 065
     Dates: start: 20190307, end: 20190326
  20. CALCIUM GLUCONATE. [Suspect]
     Active Substance: CALCIUM GLUCONATE
     Indication: PRODUCT USED FOR UNKNOWN INDICATION
     Dosage: 2.25 MMOL, BID
     Route: 042
     Dates: start: 20190322, end: 20190326
  21. ONDANSETRON [Suspect]
     Active Substance: ONDANSETRON
     Indication: PRODUCT USED FOR UNKNOWN INDICATION
     Dosage: 8 MG, TID
     Route: 042
     Dates: start: 20190313, end: 20190326
  22. VANCOMYCIN [Suspect]
     Active Substance: VANCOMYCIN
     Dosage: UNK UKN
     Route: 065
     Dates: start: 20190405
  23. BACTRIM [Suspect]
     Active Substance: SULFAMETHOXAZOLE\TRIMETHOPRIM
     Dosage: 160 MG, QW3
     Route: 065
     Dates: end: 20190327
  24. METOCLOPRAMIDE. [Suspect]
     Active Substance: METOCLOPRAMIDE
     Dosage: UNK UKN
     Route: 065
     Dates: start: 20190401
  25. MORPHINE [Suspect]
     Active Substance: MORPHINE
     Indication: PRODUCT USED FOR UNKNOWN INDICATION
     Dosage: 2 MG, QH
     Route: 041
     Dates: start: 20190325, end: 20190326
  26. PERFALGAN [Suspect]
     Active Substance: ACETAMINOPHEN
     Indication: PRODUCT USED FOR UNKNOWN INDICATION
     Dosage: UNK UKN
     Route: 042
     Dates: start: 20190307, end: 20190307
  27. VANCOMYCIN [Suspect]
     Active Substance: VANCOMYCIN
     Indication: PRODUCT USED FOR UNKNOWN INDICATION
     Dosage: 1 G, BID
     Route: 065
     Dates: start: 20190323, end: 20190327
  28. NEXIUM [Suspect]
     Active Substance: ESOMEPRAZOLE MAGNESIUM
     Indication: PRODUCT USED FOR UNKNOWN INDICATION
     Dosage: 40 MG, BID
     Route: 042
     Dates: start: 20190319, end: 20190326
  29. NEXIUM [Suspect]
     Active Substance: ESOMEPRAZOLE MAGNESIUM
     Dosage: UNK UKN
     Route: 042
     Dates: start: 20190328
  30. METOCLOPRAMIDE. [Suspect]
     Active Substance: METOCLOPRAMIDE
     Indication: PRODUCT USED FOR UNKNOWN INDICATION
     Dosage: UNK UKN
     Route: 065
     Dates: start: 20190314, end: 20190326
  31. MORPHINE [Suspect]
     Active Substance: MORPHINE
     Dosage: UNK UKN
     Route: 041
     Dates: start: 20190406
  32. PERFALGAN [Suspect]
     Active Substance: ACETAMINOPHEN
     Dosage: UNK UKN
     Route: 042
     Dates: start: 20190318, end: 20190318
  33. BACTRIM [Suspect]
     Active Substance: SULFAMETHOXAZOLE\TRIMETHOPRIM
     Dosage: 160 MG (IN TOTAL)
     Route: 065
     Dates: start: 20190322, end: 20190322
  34. TACROLIMUS. [Suspect]
     Active Substance: TACROLIMUS
     Indication: PROPHYLAXIS AGAINST GRAFT VERSUS HOST DISEASE
     Dosage: 0.03 MG/KG, QD
     Route: 041
     Dates: start: 20190323
  35. URSOFALK [Suspect]
     Active Substance: URSODIOL
     Indication: PRODUCT USED FOR UNKNOWN INDICATION
     Dosage: 250 MG, TID
     Route: 065
     Dates: start: 20190306, end: 20190326
  36. URSOFALK [Suspect]
     Active Substance: URSODIOL
     Dosage: UNK UKN
     Route: 065
     Dates: start: 20190401
  37. PERFALGAN [Suspect]
     Active Substance: ACETAMINOPHEN
     Dosage: UNK UKN
     Route: 042
     Dates: start: 20190406
  38. MESNA. [Suspect]
     Active Substance: MESNA
     Indication: PROPHYLAXIS AGAINST GRAFT VERSUS HOST DISEASE
     Dosage: UNK UKN
     Route: 065
     Dates: start: 20190321, end: 20190323

REACTIONS (2)
  - Pruritus [Recovered/Resolved]
  - Toxic epidermal necrolysis [Recovered/Resolved]

NARRATIVE: CASE EVENT DATE: 20190317
